FAERS Safety Report 7077891-1 (Version None)
Quarter: 2010Q4

REPORT INFORMATION
  Report Type: 
  Country: None (occurrence: None)
  Receive Date: 20101101
  Receipt Date: 20101019
  Transmission Date: 20110411
  Serious: Yes (Hospitalization)
  Sender: FDA-Public Use
  Company Number: JP-ELI_LILLY_AND_COMPANY-JP201006006270

PATIENT
  Age: 63 Year
  Sex: Male
  Weight: 54.6 kg

DRUGS (30)
  1. ALIMTA [Suspect]
     Indication: NON-SMALL CELL LUNG CANCER
     Dosage: 780 MG, OTHER
     Route: 042
     Dates: start: 20100428, end: 20100526
  2. ALIMTA [Suspect]
     Dosage: 780 MG, OTHER
     Route: 042
     Dates: start: 20100713, end: 20100811
  3. CISPLATIN [Concomitant]
     Indication: NON-SMALL CELL LUNG CANCER
     Dosage: 115 MG, OTHER
     Route: 042
     Dates: start: 20100428, end: 20100526
  4. CISPLATIN [Concomitant]
     Dosage: 115 MG, OTHER
     Route: 042
     Dates: start: 20100713, end: 20100811
  5. PANVITAN [Concomitant]
     Indication: PROPHYLAXIS
     Dosage: 1 MG, DAILY (1/D)
     Route: 048
     Dates: start: 20100421
  6. HYDROXOCOBALAMIN ACETATE [Concomitant]
     Indication: PROPHYLAXIS
     Dosage: 1000 UG, OTHER
     Route: 030
     Dates: start: 20100421
  7. EMEND [Concomitant]
     Indication: PROPHYLAXIS
     Dosage: 125 MG, DAILY (1/D)
     Route: 048
     Dates: start: 20100428, end: 20100428
  8. EMEND [Concomitant]
     Dosage: 80 MG, DAILY (1/D)
     Route: 048
     Dates: start: 20100429, end: 20100430
  9. EMEND [Concomitant]
     Dosage: 125 MG, DAILY (1/D)
     Route: 048
     Dates: start: 20100526, end: 20100526
  10. EMEND [Concomitant]
     Dosage: 80 MG, DAILY (1/D)
     Route: 048
     Dates: start: 20100527, end: 20100528
  11. RAMELTEON [Concomitant]
     Indication: PROPHYLAXIS
     Dosage: 0.1 MG, DAILY (1/D)
     Route: 048
     Dates: start: 20100429, end: 20100502
  12. RAMELTEON [Concomitant]
     Dosage: 0.1 MG, DAILY (1/D)
     Route: 048
     Dates: start: 20100527, end: 20100530
  13. CODEINE PHOSPHATE [Concomitant]
     Dosage: 20 MG, 3/D
     Route: 048
     Dates: start: 20100503, end: 20100512
  14. LOXONIN [Concomitant]
     Dosage: 60 MG, 3/D
     Route: 048
     Dates: start: 20100502
  15. MUCOSTA [Concomitant]
     Indication: PROPHYLAXIS
     Dosage: 100 MG, 3/D
     Route: 048
     Dates: start: 20100502
  16. MAGMITT [Concomitant]
     Dosage: 330 MG, 3/D
     Route: 048
     Dates: start: 20100507
  17. OXYCONTIN [Concomitant]
     Dosage: 5 MG, 2/D
     Route: 048
     Dates: start: 20100510
  18. OXYCODONE HYDROCHLORIDE [Concomitant]
     Dosage: 2.5 MG, UNK
     Route: 048
     Dates: start: 20100510
  19. PROCHLORPERAZINE MALEATE [Concomitant]
     Indication: PROPHYLAXIS
     Dosage: 5 MG, 3/D
     Route: 048
     Dates: start: 20100510
  20. TAKEPRON [Concomitant]
     Dosage: 30 MG, DAILY (1/D)
     Route: 048
     Dates: start: 20100528
  21. DECADRON /00016002/ [Concomitant]
     Indication: PROPHYLAXIS
     Dosage: 13.2 MG, DAILY (1/D)
     Route: 042
     Dates: start: 20100428, end: 20100428
  22. DECADRON /00016002/ [Concomitant]
     Dosage: 6.6 MG, DAILY (1/D)
     Route: 042
     Dates: start: 20100429, end: 20100430
  23. DECADRON /00016002/ [Concomitant]
     Dosage: 13.2 MG, DAILY (1/D)
     Route: 042
     Dates: start: 20100526, end: 20100526
  24. DECADRON /00016002/ [Concomitant]
     Dosage: 6.6 MG, DAILY (1/D)
     Route: 042
     Dates: start: 20100527, end: 20100528
  25. SEROTONE [Concomitant]
     Indication: PROPHYLAXIS
     Dosage: 10 MG, DAILY (1/D)
     Route: 042
     Dates: start: 20100428
  26. SEROTONE [Concomitant]
     Dosage: 10 MG, DAILY (1/D)
     Route: 042
     Dates: start: 20100526
  27. PRIMPERAN [Concomitant]
     Indication: PROPHYLAXIS
     Dosage: 20 MG, 2/D
     Route: 042
     Dates: start: 20100429, end: 20100430
  28. PRIMPERAN [Concomitant]
     Dosage: 20 MG, 2/D
     Route: 042
     Dates: start: 20100527, end: 20100528
  29. LASIX [Concomitant]
     Indication: PROPHYLAXIS
     Dosage: 20 MG, DAILY (1/D)
     Route: 042
     Dates: start: 20100428, end: 20100430
  30. LASIX [Concomitant]
     Dosage: 20 MG, DAILY (1/D)
     Route: 042
     Dates: start: 20100526, end: 20100528

REACTIONS (2)
  - DEEP VEIN THROMBOSIS [None]
  - PULMONARY EMBOLISM [None]
